FAERS Safety Report 18356486 (Version 2)
Quarter: 2020Q4

REPORT INFORMATION
  Report Type: Spontaneous
  Country: US (occurrence: US)
  Receive Date: 20201007
  Receipt Date: 20201203
  Transmission Date: 20210114
  Serious: No
  Sender: FDA-Public Use
  Company Number: US-EMD SERONO-9187463

PATIENT
  Age: 54 Year
  Sex: Female

DRUGS (2)
  1. MAVENCLAD [Suspect]
     Active Substance: CLADRIBINE
     Indication: MULTIPLE SCLEROSIS
     Dosage: YEAR ONE MONTH ONE THERAPY
     Route: 048
     Dates: start: 20200828
  2. MAVENCLAD [Suspect]
     Active Substance: CLADRIBINE
     Dosage: YEAR ONE MONTH TWO THERAPY
     Route: 048
     Dates: start: 20200923

REACTIONS (8)
  - Chest discomfort [Recovered/Resolved]
  - Musculoskeletal chest pain [Not Recovered/Not Resolved]
  - Abdominal pain [Recovered/Resolved]
  - Headache [Recovered/Resolved]
  - Pain in extremity [Recovered/Resolved]
  - Product administration error [Unknown]
  - Eating disorder [Not Recovered/Not Resolved]
  - Abdominal discomfort [Not Recovered/Not Resolved]

NARRATIVE: CASE EVENT DATE: 202008
